FAERS Safety Report 24670862 (Version 1)
Quarter: 2024Q4

REPORT INFORMATION
  Report Type: Spontaneous
  Country: US (occurrence: US)
  Receive Date: 20241127
  Receipt Date: 20241127
  Transmission Date: 20250115
  Serious: Yes (Other)
  Sender: AMGEN
  Company Number: US-AMGEN-USASP2024231759

PATIENT
  Age: 63 Year
  Sex: Male

DRUGS (4)
  1. PREDNISONE [Suspect]
     Active Substance: PREDNISONE
     Indication: Tubulointerstitial nephritis
     Dosage: {_20 MILLIGRAM
     Route: 065
  2. PREDNISONE [Suspect]
     Active Substance: PREDNISONE
     Dosage: 10 MILLIGRAM, QD
     Route: 065
  3. INFLIXIMAB [Suspect]
     Active Substance: INFLIXIMAB
     Indication: Tubulointerstitial nephritis
     Dosage: UNK
     Route: 065
  4. IPILIMUMAB;NIVOLUMAB [Concomitant]

REACTIONS (3)
  - Tubulointerstitial nephritis [Unknown]
  - Drug effective for unapproved indication [Unknown]
  - Off label use [Unknown]
